FAERS Safety Report 6481332-2 (Version None)
Quarter: 2009Q4

REPORT INFORMATION
  Report Type: 
  Country: None (occurrence: None)
  Receive Date: 20091208
  Receipt Date: 20091130
  Transmission Date: 20100525
  Serious: Yes (Hospitalization)
  Sender: FDA-Public Use
  Company Number: B0595825A

PATIENT
  Sex: Female
  Weight: 41 kg

DRUGS (6)
  1. TYKERB [Suspect]
     Indication: BREAST CANCER
     Dosage: 1250MG PER DAY
     Route: 048
     Dates: start: 20090918, end: 20090925
  2. XELODA [Concomitant]
     Indication: BREAST CANCER
     Route: 048
     Dates: start: 20090501, end: 20090925
  3. PYDOXAL [Concomitant]
     Route: 065
  4. UNKNOWN DRUG [Concomitant]
     Route: 048
  5. MUCOSTA [Concomitant]
     Route: 048
  6. CHINESE MEDICINE [Concomitant]
     Route: 048

REACTIONS (2)
  - BLOOD BILIRUBIN INCREASED [None]
  - JAUNDICE [None]
